FAERS Safety Report 14655004 (Version 1)
Quarter: 2018Q1

REPORT INFORMATION
  Report Type: Spontaneous
  Country: CA (occurrence: CA)
  Receive Date: 20180319
  Receipt Date: 20180319
  Transmission Date: 20180509
  Serious: Yes (Hospitalization)
  Sender: FDA-Public Use
  Company Number: CA-HLSUS-2018-CA-000444

PATIENT
  Age: 25 Year
  Sex: Female

DRUGS (3)
  1. CLOZARIL [Suspect]
     Active Substance: CLOZAPINE
     Indication: SCHIZOPHRENIA
  2. CLONAZEPAM. [Concomitant]
     Active Substance: CLONAZEPAM
  3. ABILIFY [Concomitant]
     Active Substance: ARIPIPRAZOLE

REACTIONS (7)
  - Hypotension [Recovered/Resolved]
  - Pyrexia [Recovered/Resolved]
  - Red blood cell sedimentation rate increased [Recovered/Resolved]
  - Myocarditis [Recovered/Resolved]
  - Tachycardia [Recovered/Resolved]
  - Neuroleptic malignant syndrome [Recovered/Resolved]
  - C-reactive protein increased [Recovered/Resolved]
